FAERS Safety Report 7062436-2 (Version None)
Quarter: 2010Q4

REPORT INFORMATION
  Report Type: 
  Country: None (occurrence: None)
  Receive Date: 20101026
  Receipt Date: 20091015
  Transmission Date: 20110411
  Serious: No
  Sender: FDA-Public Use
  Company Number: US-PFIZER INC-2009284191

PATIENT
  Sex: Male
  Weight: 82.1 kg

DRUGS (6)
  1. LIPITOR [Suspect]
     Dosage: UNK
     Route: 048
  2. ACETYLSALICYLIC ACID [Concomitant]
     Indication: CORONARY ARTERY BYPASS
     Dosage: 325 MG, DAILY AT HOUR OF SLEEP
     Route: 048
  3. HEPAGRISEVIT FORTE-N TABLET [Concomitant]
     Indication: CARDIAC DISORDER
     Dosage: 1 TABLET, DAILY IN AM
     Route: 048
  4. LOVAZA [Concomitant]
     Indication: CARDIAC DISORDER
     Dosage: 1 TABLET, DAILY IN AM
     Route: 048
  5. ESOMEPRAZOLE MAGNESIUM [Concomitant]
     Indication: GASTRITIS
     Dosage: 1 TABLET, DAILY IN AM
     Route: 048
  6. CLOPIDOGREL [Concomitant]
     Indication: CORONARY ARTERY BYPASS
     Dosage: UNK
     Route: 048

REACTIONS (1)
  - MUSCLE SPASMS [None]
